FAERS Safety Report 18141499 (Version 1)
Quarter: 2020Q3

REPORT INFORMATION
  Report Type: Spontaneous
  Country: FI (occurrence: FI)
  Receive Date: 20200812
  Receipt Date: 20200812
  Transmission Date: 20201103
  Serious: Yes (Death, Hospitalization, Other)
  Sender: FDA-Public Use
  Company Number: FI-AMGEN-FINSP2020126365

PATIENT

DRUGS (12)
  1. CISPLATIN. [Concomitant]
     Active Substance: CISPLATIN
  2. IFOSFAMIDE. [Concomitant]
     Active Substance: IFOSFAMIDE
  3. ETOPOSIDE. [Concomitant]
     Active Substance: ETOPOSIDE
  4. BORTEZOMIB. [Concomitant]
     Active Substance: BORTEZOMIB
  5. FILGRASTIM [Suspect]
     Active Substance: FILGRASTIM
     Indication: HAEMATOPOIETIC STEM CELL MOBILISATION
     Dosage: UNK
     Route: 065
  6. LENALIDOMIDE [Concomitant]
     Active Substance: LENALIDOMIDE
  7. CARBOPLATIN. [Concomitant]
     Active Substance: CARBOPLATIN
  8. PLERIXAFOR [Concomitant]
     Active Substance: PLERIXAFOR
  9. PEGFILGRASTIM [Suspect]
     Active Substance: PEGFILGRASTIM
     Indication: HAEMATOPOIETIC STEM CELL MOBILISATION
     Dosage: UNK
     Route: 065
  10. CYCLOPHOSPHAMIDE. [Concomitant]
     Active Substance: CYCLOPHOSPHAMIDE
     Dosage: 2 GRAM PER METRE SQ. TO MM PATIENT AND 4 GRAM PER METRE SQ. TO NHL PATIENT
  11. CYTARABINE. [Concomitant]
     Active Substance: CYTARABINE
  12. DEXAMETHASONE. [Concomitant]
     Active Substance: DEXAMETHASONE

REACTIONS (11)
  - Febrile neutropenia [Unknown]
  - Pneumonia [Unknown]
  - Infection [Unknown]
  - Bacteraemia [Unknown]
  - Non-Hodgkin^s lymphoma [Fatal]
  - Death [Fatal]
  - Plasma cell myeloma [Fatal]
  - Off label use [Unknown]
  - Pneumocystis jirovecii infection [Unknown]
  - Varicella zoster virus infection [Unknown]
  - Sepsis [Unknown]
